FAERS Safety Report 5087714-8 (Version None)
Quarter: 2006Q3

REPORT INFORMATION
  Report Type: 
  Country: None (occurrence: None)
  Receive Date: 20060824
  Receipt Date: 20060719
  Transmission Date: 20061208
  Serious: Yes (Hospitalization)
  Sender: FDA-Public Use
  Company Number: CS-BRISTOL-MYERS SQUIBB COMPANY-13467709

PATIENT
  Age: 18 Year
  Sex: Female

DRUGS (4)
  1. ARIPIPRAZOLE [Suspect]
     Indication: SCHIZOPHRENIA
     Dosage: REDUCED TO 20 MG DAILY ON 03-JUL-2006
     Route: 048
     Dates: start: 20060227
  2. ARIPIPRAZOLE [Suspect]
     Indication: BIPOLAR DISORDER
     Dosage: REDUCED TO 20 MG DAILY ON 03-JUL-2006
     Route: 048
     Dates: start: 20060227
  3. LORAZEPAM [Concomitant]
     Route: 048
     Dates: start: 20060227
  4. TRIHEXYPHENIDYL HCL [Concomitant]
     Route: 048
     Dates: start: 20060522

REACTIONS (1)
  - SCHIZOPHRENIA [None]
